FAERS Safety Report 15964748 (Version 1)
Quarter: 2019Q1

REPORT INFORMATION
  Report Type: Report from Study
  Country: None (occurrence: BR)
  Receive Date: 20190215
  Receipt Date: 20190215
  Transmission Date: 20190418
  Serious: Yes (Death, Other)
  Sender: FDA-Public Use
  Company Number: BR-ABBVIE-19K-020-2666931-00

PATIENT
  Sex: Male
  Weight: 42 kg

DRUGS (1)
  1. HUMIRA [Suspect]
     Active Substance: ADALIMUMAB
     Indication: RHEUMATOID ARTHRITIS
     Route: 058

REACTIONS (6)
  - Asthenia [Fatal]
  - Arrhythmia [Unknown]
  - Arthralgia [Fatal]
  - Hypophagia [Fatal]
  - Arthropathy [Unknown]
  - Knee deformity [Unknown]
